FAERS Safety Report 5134740-6 (Version None)
Quarter: 2006Q4

REPORT INFORMATION
  Report Type: 
  Country: None (occurrence: None)
  Receive Date: 20061025
  Receipt Date: 20061013
  Transmission Date: 20070319
  Serious: Yes (Other)
  Sender: FDA-Public Use
  Company Number: GBWYE227813OCT06

PATIENT
  Age: 77 Year
  Sex: Female

DRUGS (6)
  1. ENBREL [Suspect]
     Indication: RHEUMATOID ARTHRITIS
     Dates: start: 20030901
  2. LEVOTHYROXINE SODIUM [Concomitant]
     Dosage: UNKNOWN
     Route: 048
  3. FERROUS SULFATE TAB [Concomitant]
     Dosage: UNKNOWN
  4. GABAPENTIN [Concomitant]
     Route: 048
  5. AMITRIPTYLINE HCL [Concomitant]
     Indication: RHEUMATOID ARTHRITIS
     Route: 048
  6. DIDRONEL PMO [Concomitant]
     Dosage: UNKNOWN
     Route: 048

REACTIONS (1)
  - SCLERITIS [None]
